FAERS Safety Report 13345934 (Version 1)
Quarter: 2017Q1

REPORT INFORMATION
  Report Type: Spontaneous
  Country: DE (occurrence: DE)
  Receive Date: 20170317
  Receipt Date: 20170317
  Transmission Date: 20170428
  Serious: Yes (Hospitalization, Other)
  Sender: FDA-Public Use
  Company Number: GXKR2017DE001408

PATIENT
  Age: 4 Year
  Sex: Male
  Weight: 21 kg

DRUGS (1)
  1. LEVETIRACETAM HEXAL [Suspect]
     Active Substance: LEVETIRACETAM
     Indication: PARTIAL SEIZURES
     Dosage: DAILY DOSE OF 750 MG
     Route: 048
     Dates: start: 201610

REACTIONS (6)
  - Vomiting [Recovering/Resolving]
  - Wrong technique in product usage process [Unknown]
  - Product taste abnormal [Recovering/Resolving]
  - Muscular weakness [Recovering/Resolving]
  - Pallor [Recovering/Resolving]
  - Seizure [Recovering/Resolving]
